FAERS Safety Report 11511787 (Version 1)
Quarter: 2015Q3

REPORT INFORMATION
  Report Type: Report from Study
  Country: US (occurrence: US)
  Receive Date: 20150915
  Receipt Date: 20150915
  Transmission Date: 20151125
  Serious: Yes (Other)
  Sender: FDA-Public Use
  Company Number: US-AMGEN-USASL2015093985

PATIENT
  Age: 41 Year
  Sex: Male

DRUGS (1)
  1. ENBREL [Suspect]
     Active Substance: ETANERCEPT
     Indication: PSORIATIC ARTHROPATHY
     Dosage: 50 MG, 2 TIMES/WK
     Route: 065
     Dates: start: 2003

REACTIONS (4)
  - Pulmonary embolism [Unknown]
  - Deep vein thrombosis [Unknown]
  - Hip arthroplasty [Unknown]
  - Thrombosis [Unknown]

NARRATIVE: CASE EVENT DATE: 2010
